FAERS Safety Report 4469440-9 (Version None)
Quarter: 2004Q4

REPORT INFORMATION
  Report Type: 
  Country: None (occurrence: None)
  Receive Date: 20041005
  Receipt Date: 20041005
  Transmission Date: 20050328
  Serious: Yes (Hospitalization)
  Sender: FDA-Public Use
  Company Number: None

PATIENT
  Age: 53 Year
  Sex: Male
  Weight: 86 kg

DRUGS (2)
  1. HEPARIN [Suspect]
     Indication: PULMONARY EMBOLISM
     Dosage: WEIGHT BASED   TITRATED  INTRAVENOUS
     Route: 042
     Dates: start: 20040822, end: 20040824
  2. HEPARIN [Suspect]
     Indication: PULMONARY EMBOLISM
     Dosage: 10,000 UNITS   BID   SUBCUTANEOU
     Route: 058
     Dates: start: 20040822, end: 20040824

REACTIONS (1)
  - HEPARIN-INDUCED THROMBOCYTOPENIA [None]
